FAERS Safety Report 15683100 (Version 8)
Quarter: 2019Q1

REPORT INFORMATION
  Report Type: Report from Study
  Country: CO (occurrence: CO)
  Receive Date: 20181204
  Receipt Date: 20190204
  Transmission Date: 20190417
  Serious: Yes (Death)
  Sender: FDA-Public Use
  Company Number: CO-ROCHE-2223292

PATIENT
  Age: 38 Year
  Sex: Male
  Weight: 66.4 kg

DRUGS (21)
  1. RIFAMPICIN [Concomitant]
     Active Substance: RIFAMPIN
     Route: 048
     Dates: start: 201811, end: 20181214
  2. BLINDED METHYLPREDNISOLONE [Suspect]
     Active Substance: METHYLPREDNISOLONE
     Indication: LUPUS NEPHRITIS
     Dosage: ONCE DAILY FOR UP TO 3 DAYS (AS PER PROTOCOL)?DATE OF MOST RECENT DOSE OF BLINDED METHYLPREDNISOLONE
     Route: 042
     Dates: start: 20161024
  3. CALCITRIOL. [Concomitant]
     Active Substance: CALCITRIOL
     Indication: LUPUS NEPHRITIS
     Route: 048
     Dates: start: 20160823
  4. FUROSEMIDE. [Concomitant]
     Active Substance: FUROSEMIDE
     Indication: LUPUS NEPHRITIS
     Route: 048
     Dates: start: 20161121, end: 20181214
  5. ENALAPRIL [Concomitant]
     Active Substance: ENALAPRIL
     Route: 048
     Dates: start: 20170410, end: 20181214
  6. ALLOPURINOL. [Concomitant]
     Active Substance: ALLOPURINOL
     Route: 048
     Dates: start: 20170410, end: 20181214
  7. FOLIC ACID. [Concomitant]
     Active Substance: FOLIC ACID
     Route: 048
     Dates: start: 2014, end: 20181214
  8. ISONIAZID. [Concomitant]
     Active Substance: ISONIAZID
     Route: 048
     Dates: start: 201811, end: 20181214
  9. PREDNISOLONE. [Concomitant]
     Active Substance: PREDNISOLONE
     Route: 048
     Dates: start: 20181104, end: 20181214
  10. OMEPRAZOLE. [Concomitant]
     Active Substance: OMEPRAZOLE
     Route: 042
     Dates: start: 20181104, end: 20181214
  11. MEROPENEM. [Concomitant]
     Active Substance: MEROPENEM
     Route: 042
     Dates: start: 20181108, end: 20181214
  12. BLINDED OBINUTUZUMAB [Suspect]
     Active Substance: OBINUTUZUMAB
     Indication: LUPUS NEPHRITIS
     Dosage: ON DAYS 1, 15, 168, AND 182 (AS PER PROTOCOL) ?DATE OF MOST RECENT DOSE OF BLINDED OBINUTUZUMAB PRIO
     Route: 042
     Dates: start: 20161024
  13. MYCOPHENOLATE MOFETIL. [Suspect]
     Active Substance: MYCOPHENOLATE MOFETIL
     Indication: LUPUS NEPHRITIS
     Dosage: DATE OF MOST RECENT DOSE 2500 MG OF MYCOPHENOLATE MOFETIL PRIOR TO AE ONSET ON 03/NOV/2018
     Route: 048
     Dates: start: 20160823
  14. NOREPINEPHRINE. [Concomitant]
     Active Substance: NOREPINEPHRINE
     Route: 042
     Dates: start: 20181104, end: 20181214
  15. VANCOMYCIN [Concomitant]
     Active Substance: VANCOMYCIN
     Route: 042
     Dates: start: 20181104, end: 20181214
  16. FENTANYL. [Concomitant]
     Active Substance: FENTANYL
     Dosage: AMPULE
     Route: 042
     Dates: start: 20181104, end: 20181214
  17. OSELTAMIVIR [Concomitant]
     Active Substance: OSELTAMIVIR
     Route: 042
     Dates: start: 20181109, end: 20181214
  18. FERROUS SULFATE. [Concomitant]
     Active Substance: FERROUS SULFATE
     Route: 048
     Dates: start: 2014
  19. PREDNISOLONE. [Concomitant]
     Active Substance: PREDNISOLONE
     Indication: LUPUS NEPHRITIS
     Route: 048
     Dates: start: 20170117, end: 20181103
  20. HYDROXYCHLOROQUINE [Concomitant]
     Active Substance: HYDROXYCHLOROQUINE
     Route: 048
     Dates: start: 20170410
  21. HEPARIN [Concomitant]
     Active Substance: HEPARIN SODIUM
     Route: 058
     Dates: start: 20181104, end: 20181214

REACTIONS (1)
  - Acute respiratory failure [Fatal]

NARRATIVE: CASE EVENT DATE: 20181104
